FAERS Safety Report 7197519-X (Version None)
Quarter: 2010Q4

REPORT INFORMATION
  Report Type: 
  Country: None (occurrence: None)
  Receive Date: 20101208
  Receipt Date: 20101202
  Transmission Date: 20110411
  Serious: Yes (Life-Threatening, Hospitalization)
  Sender: FDA-Public Use
  Company Number: 2010SP063011

PATIENT
  Age: 40 Year
  Sex: Male

DRUGS (2)
  1. TEMOZOLOMIDE [Suspect]
     Indication: OLIGODENDROGLIOMA
     Dosage: 75 MG/M2;QD;
  2. RADIATION THERAPY [Suspect]
     Indication: OLIGODENDROGLIOMA

REACTIONS (9)
  - BONE MARROW FAILURE [None]
  - CELLULITIS [None]
  - CHILLS [None]
  - FEBRILE NEUTROPENIA [None]
  - HYPERHIDROSIS [None]
  - INCREASED TENDENCY TO BRUISE [None]
  - OEDEMA PERIPHERAL [None]
  - PYREXIA [None]
  - STOMATITIS [None]
